FAERS Safety Report 5526859-2 (Version None)
Quarter: 2007Q4

REPORT INFORMATION
  Report Type: 
  Country: None (occurrence: None)
  Receive Date: 20071127
  Receipt Date: 20071117
  Transmission Date: 20080405
  Serious: Yes (Hospitalization, Other)
  Sender: FDA-Public Use
  Company Number: US-PFIZER INC-2007067941

PATIENT
  Sex: Female
  Weight: 52.6 kg

DRUGS (9)
  1. DETROL [Suspect]
     Indication: HYPERTONIC BLADDER
     Route: 048
  2. VALSARTAN [Concomitant]
     Indication: HYPERTENSION
     Dosage: DAILY DOSE:160MG
  3. PROTONIX [Concomitant]
     Route: 048
  4. SYNTHROID [Concomitant]
     Indication: HYPOTHYROIDISM
     Route: 048
  5. PIROXICAM [Concomitant]
     Indication: RHEUMATOID ARTHRITIS
  6. LOTREL [Concomitant]
     Indication: HYPERTENSION
     Route: 048
  7. LEXAPRO [Concomitant]
     Indication: DEPRESSION
  8. FOSAMAX [Concomitant]
     Indication: OSTEOPOROSIS
  9. ACETYLSALICYLIC ACID SRT [Concomitant]
     Route: 048

REACTIONS (7)
  - DEHYDRATION [None]
  - DRUG INEFFECTIVE [None]
  - FALL [None]
  - HYPONATRAEMIA [None]
  - NOCTURIA [None]
  - SPINAL FUSION SURGERY [None]
  - SURGERY [None]
